FAERS Safety Report 4281683-6 (Version None)
Quarter: 2004Q1

REPORT INFORMATION
  Report Type: 
  Country: None (occurrence: None)
  Receive Date: 20040128
  Receipt Date: 20040116
  Transmission Date: 20041129
  Serious: Yes (Hospitalization)
  Sender: FDA-Public Use
  Company Number: 2003182705SE

PATIENT
  Age: 45 Year
  Sex: Male
  Weight: 86 kg

DRUGS (4)
  1. PHARMORUBICIN RD (EPIRUBICIN HYDROCHLORIDE)POWDER, STERILE [Suspect]
     Indication: BREAST CANCER
     Dosage: 199.5 MG(LAST DOSE GIVEN), CYCLIC UNK
     Dates: start: 20030829, end: 20031009
  2. FLUOROURACIL [Suspect]
     Indication: BREAST CANCER
     Dosage: 1150 MG(LAST DOSE GIVEN), CYCLIC UNK
     Dates: start: 20030829, end: 20031009
  3. CYCLOPHOSPHAMIDE [Suspect]
     Indication: BREAST CANCER
     Dosage: 2300 MG (LAST DOSE GIVEN), CYCLIC UNK
     Dates: start: 20030829, end: 20031009
  4. DICLOFENAC [Concomitant]

REACTIONS (4)
  - ANAEMIA [None]
  - CHILLS [None]
  - HEADACHE [None]
  - PYREXIA [None]
